FAERS Safety Report 21666464 (Version 2)
Quarter: 2022Q4

REPORT INFORMATION
  Report Type: Report from Study
  Country: CH (occurrence: CH)
  Receive Date: 20221201
  Receipt Date: 20221208
  Transmission Date: 20230112
  Serious: Yes (Hospitalization)
  Sender: FDA-Public Use
  Company Number: CH-ABBVIE-22K-151-4499914-00

PATIENT
  Age: 88 Year
  Sex: Male
  Weight: 70 kg

DRUGS (18)
  1. VENETOCLAX [Suspect]
     Active Substance: VENETOCLAX
     Indication: Chronic lymphocytic leukaemia
     Route: 048
     Dates: start: 20220822, end: 20221114
  2. VENETOCLAX [Suspect]
     Active Substance: VENETOCLAX
     Indication: Chronic lymphocytic leukaemia
     Route: 048
     Dates: start: 20220510, end: 20220516
  3. VENETOCLAX [Suspect]
     Active Substance: VENETOCLAX
     Indication: Chronic lymphocytic leukaemia
     Route: 048
     Dates: start: 20220517, end: 20220523
  4. VENETOCLAX [Suspect]
     Active Substance: VENETOCLAX
     Indication: Chronic lymphocytic leukaemia
     Route: 048
     Dates: start: 20220524, end: 20220530
  5. VENETOCLAX [Suspect]
     Active Substance: VENETOCLAX
     Indication: Chronic lymphocytic leukaemia
     Route: 048
     Dates: start: 20220531, end: 20220606
  6. VENETOCLAX [Suspect]
     Active Substance: VENETOCLAX
     Indication: Chronic lymphocytic leukaemia
     Route: 048
     Dates: start: 20220607, end: 20220613
  7. VENETOCLAX [Suspect]
     Active Substance: VENETOCLAX
     Indication: Chronic lymphocytic leukaemia
     Route: 048
     Dates: start: 20220614, end: 20220821
  8. ALLOPURINOL [Concomitant]
     Active Substance: ALLOPURINOL
     Indication: Product used for unknown indication
     Route: 048
  9. JANUVIA [Concomitant]
     Active Substance: SITAGLIPTIN PHOSPHATE
     Indication: Product used for unknown indication
     Route: 048
  10. chondroitini sulfas natricus (Condrosulf) [Concomitant]
     Indication: Product used for unknown indication
     Route: 048
  11. VALTREX [Concomitant]
     Active Substance: VALACYCLOVIR HYDROCHLORIDE
     Indication: Product used for unknown indication
     Route: 048
     Dates: start: 20220507
  12. Paspertin [Concomitant]
     Indication: Product used for unknown indication
     Dosage: IF NEEDED
     Route: 048
     Dates: start: 20220506
  13. ATENOLOL MEPHA [Concomitant]
     Indication: Product used for unknown indication
     Route: 048
  14. Valaciclovir (Valtrex) [Concomitant]
     Indication: Product used for unknown indication
     Route: 048
     Dates: start: 20220507
  15. PANTOPRAZOLE SODIUM [Concomitant]
     Active Substance: PANTOPRAZOLE SODIUM
     Indication: Product used for unknown indication
     Dosage: IF NEEDED
     Route: 048
     Dates: start: 20220305
  16. Carbomerum (Lacryvisc) [Concomitant]
     Indication: Product used for unknown indication
     Route: 058
  17. Trimethoprimum + Sulfamethoxazolum (Bactrim Forte) [Concomitant]
     Indication: Product used for unknown indication
     Dosage: 800/160
     Route: 048
     Dates: start: 20220507, end: 20220922
  18. EMPAGLIFLOZIN\METFORMIN HYDROCHLORIDE [Concomitant]
     Active Substance: EMPAGLIFLOZIN\METFORMIN HYDROCHLORIDE
     Indication: Product used for unknown indication
     Route: 048
     Dates: start: 20200623

REACTIONS (9)
  - COVID-19 [Recovered/Resolved]
  - Tenosynovitis stenosans [Not Recovered/Not Resolved]
  - Muscle spasms [Not Recovered/Not Resolved]
  - Diarrhoea [Recovered/Resolved]
  - Thrombocytopenia [Not Recovered/Not Resolved]
  - COVID-19 [Unknown]
  - Neutropenia [Unknown]
  - Diarrhoea [Unknown]
  - COVID-19 [Recovered/Resolved]

NARRATIVE: CASE EVENT DATE: 20220101
